FAERS Safety Report 25587694 (Version 2)
Quarter: 2025Q4

REPORT INFORMATION
  Report Type: Spontaneous
  Country: EU (occurrence: EU)
  Receive Date: 20250721
  Receipt Date: 20251204
  Transmission Date: 20260118
  Serious: Yes (Hospitalization)
  Sender: MYLAN
  Company Number: None

PATIENT
  Age: 65 Year
  Sex: Female
  Weight: 56 kg

DRUGS (40)
  1. METFORMIN [Suspect]
     Active Substance: METFORMIN HYDROCHLORIDE
     Indication: Type 2 diabetes mellitus
     Dosage: 2100 MILLIGRAM, TOTAL
     Dates: start: 20230701, end: 20250514
  2. METFORMIN [Suspect]
     Active Substance: METFORMIN HYDROCHLORIDE
     Dosage: 2100 MILLIGRAM, TOTAL
     Route: 048
     Dates: start: 20230701, end: 20250514
  3. METFORMIN [Suspect]
     Active Substance: METFORMIN HYDROCHLORIDE
     Dosage: 2100 MILLIGRAM, TOTAL
     Route: 048
     Dates: start: 20230701, end: 20250514
  4. METFORMIN [Suspect]
     Active Substance: METFORMIN HYDROCHLORIDE
     Dosage: 2100 MILLIGRAM, TOTAL
     Dates: start: 20230701, end: 20250514
  5. PACLITAXEL [Suspect]
     Active Substance: PACLITAXEL
     Indication: Lung squamous cell carcinoma metastatic
     Dosage: 792 MILLIGRAM, TOTAL
     Dates: start: 20250304, end: 20250422
  6. PACLITAXEL [Suspect]
     Active Substance: PACLITAXEL
     Dosage: 792 MILLIGRAM, TOTAL
     Route: 042
     Dates: start: 20250304, end: 20250422
  7. PACLITAXEL [Suspect]
     Active Substance: PACLITAXEL
     Dosage: 792 MILLIGRAM, TOTAL
     Route: 042
     Dates: start: 20250304, end: 20250422
  8. PACLITAXEL [Suspect]
     Active Substance: PACLITAXEL
     Dosage: 792 MILLIGRAM, TOTAL
     Dates: start: 20250304, end: 20250422
  9. CARBOPLATIN [Suspect]
     Active Substance: CARBOPLATIN
     Indication: Lung squamous cell carcinoma metastatic
     Dosage: 2040 MILLIGRAM, TOTAL
     Dates: start: 20250304, end: 20250422
  10. CARBOPLATIN [Suspect]
     Active Substance: CARBOPLATIN
     Dosage: 2040 MILLIGRAM, TOTAL
     Route: 042
     Dates: start: 20250304, end: 20250422
  11. CARBOPLATIN [Suspect]
     Active Substance: CARBOPLATIN
     Dosage: 2040 MILLIGRAM, TOTAL
     Route: 042
     Dates: start: 20250304, end: 20250422
  12. CARBOPLATIN [Suspect]
     Active Substance: CARBOPLATIN
     Dosage: 2040 MILLIGRAM, TOTAL
     Dates: start: 20250304, end: 20250422
  13. PERINDOPRIL [Suspect]
     Active Substance: PERINDOPRIL
     Indication: Hypertension
     Dosage: 10 MILLIGRAM, QD
     Dates: end: 20250514
  14. PERINDOPRIL [Suspect]
     Active Substance: PERINDOPRIL
     Dosage: 10 MILLIGRAM, QD
     Route: 048
     Dates: end: 20250514
  15. PERINDOPRIL [Suspect]
     Active Substance: PERINDOPRIL
     Dosage: 10 MILLIGRAM, QD
     Route: 048
     Dates: end: 20250514
  16. PERINDOPRIL [Suspect]
     Active Substance: PERINDOPRIL
     Dosage: 10 MILLIGRAM, QD
     Dates: end: 20250514
  17. ATORVASTATIN [Suspect]
     Active Substance: ATORVASTATIN
     Indication: Dyslipidaemia
     Dosage: 20 MILLIGRAM, QD
     Dates: end: 20250514
  18. ATORVASTATIN [Suspect]
     Active Substance: ATORVASTATIN
     Dosage: 20 MILLIGRAM, QD
     Route: 048
     Dates: end: 20250514
  19. ATORVASTATIN [Suspect]
     Active Substance: ATORVASTATIN
     Dosage: 20 MILLIGRAM, QD
     Route: 048
     Dates: end: 20250514
  20. ATORVASTATIN [Suspect]
     Active Substance: ATORVASTATIN
     Dosage: 20 MILLIGRAM, QD
     Dates: end: 20250514
  21. KEYTRUDA [Suspect]
     Active Substance: PEMBROLIZUMAB
     Indication: Lung squamous cell carcinoma metastatic
     Dosage: 600 MILLIGRAM, TOTAL
     Dates: start: 20250304, end: 20250422
  22. KEYTRUDA [Suspect]
     Active Substance: PEMBROLIZUMAB
     Dosage: 600 MILLIGRAM, TOTAL
     Route: 042
     Dates: start: 20250304, end: 20250422
  23. KEYTRUDA [Suspect]
     Active Substance: PEMBROLIZUMAB
     Dosage: 600 MILLIGRAM, TOTAL
     Route: 042
     Dates: start: 20250304, end: 20250422
  24. KEYTRUDA [Suspect]
     Active Substance: PEMBROLIZUMAB
     Dosage: 600 MILLIGRAM, TOTAL
     Dates: start: 20250304, end: 20250422
  25. KARDEGIC [Concomitant]
     Active Substance: ASPIRIN DL-LYSINE
     Dosage: UNK
  26. KARDEGIC [Concomitant]
     Active Substance: ASPIRIN DL-LYSINE
     Dosage: UNK
     Route: 065
  27. KARDEGIC [Concomitant]
     Active Substance: ASPIRIN DL-LYSINE
     Dosage: UNK
     Route: 065
  28. KARDEGIC [Concomitant]
     Active Substance: ASPIRIN DL-LYSINE
     Dosage: UNK
  29. AMLODIPINE [Concomitant]
     Active Substance: AMLODIPINE BESYLATE
     Dosage: UNK
  30. AMLODIPINE [Concomitant]
     Active Substance: AMLODIPINE BESYLATE
     Dosage: UNK
     Route: 065
  31. AMLODIPINE [Concomitant]
     Active Substance: AMLODIPINE BESYLATE
     Dosage: UNK
     Route: 065
  32. AMLODIPINE [Concomitant]
     Active Substance: AMLODIPINE BESYLATE
     Dosage: UNK
  33. ACETAMINOPHEN [Concomitant]
     Active Substance: ACETAMINOPHEN
     Dosage: UNK
  34. ACETAMINOPHEN [Concomitant]
     Active Substance: ACETAMINOPHEN
     Dosage: UNK
     Route: 065
  35. ACETAMINOPHEN [Concomitant]
     Active Substance: ACETAMINOPHEN
     Dosage: UNK
     Route: 065
  36. ACETAMINOPHEN [Concomitant]
     Active Substance: ACETAMINOPHEN
     Dosage: UNK
  37. ESOMEPRAZOLE [Concomitant]
     Active Substance: ESOMEPRAZOLE
     Dosage: UNK
  38. ESOMEPRAZOLE [Concomitant]
     Active Substance: ESOMEPRAZOLE
     Dosage: UNK
     Route: 065
  39. ESOMEPRAZOLE [Concomitant]
     Active Substance: ESOMEPRAZOLE
     Dosage: UNK
     Route: 065
  40. ESOMEPRAZOLE [Concomitant]
     Active Substance: ESOMEPRAZOLE
     Dosage: UNK

REACTIONS (2)
  - Enterocolitis [Recovered/Resolved with Sequelae]
  - Acute kidney injury [Recovered/Resolved]

NARRATIVE: CASE EVENT DATE: 20250401
